FAERS Safety Report 5493869-3 (Version None)
Quarter: 2007Q4

REPORT INFORMATION
  Report Type: 
  Country: None (occurrence: None)
  Receive Date: 20071023
  Receipt Date: 20071016
  Transmission Date: 20080405
  Serious: Yes (Other)
  Sender: FDA-Public Use
  Company Number: US-GENENTECH-249285

PATIENT
  Sex: Female

DRUGS (5)
  1. RANIBIZUMAB [Suspect]
     Indication: MACULAR DEGENERATION
     Route: 031
     Dates: start: 20060120
  2. TEGRETOL [Concomitant]
     Indication: NEURALGIA
     Dates: start: 19800101
  3. SYNTHROID [Concomitant]
     Indication: HYPOTHYROIDISM
     Dates: start: 20010101
  4. OCUVITE EXTRA [Concomitant]
     Indication: MACULAR DEGENERATION
     Dates: start: 20030101
  5. OCUVITE EXTRA [Concomitant]
     Indication: MEDICAL DIET

REACTIONS (1)
  - CEREBROVASCULAR ACCIDENT [None]
